FAERS Safety Report 17670822 (Version 1)
Quarter: 2020Q2

REPORT INFORMATION
  Report Type: Spontaneous
  Country: US (occurrence: US)
  Receive Date: 20200415
  Receipt Date: 20200415
  Transmission Date: 20200713
  Serious: No
  Sender: FDA-Public Use
  Company Number: US-LUPIN PHARMACEUTICALS INC.-2019-06520

PATIENT
  Sex: Female

DRUGS (1)
  1. MY WAY [Suspect]
     Active Substance: LEVONORGESTREL
     Indication: POST COITAL CONTRACEPTION
     Dosage: 1 DOSAGE FORM, SINGLE
     Route: 065
     Dates: start: 20191002

REACTIONS (2)
  - Abdominal pain lower [Not Recovered/Not Resolved]
  - Breast tenderness [Not Recovered/Not Resolved]
